FAERS Safety Report 9116252 (Version 1)
Quarter: 2013Q1

REPORT INFORMATION
  Report Type: Spontaneous
  Country: NL (occurrence: NL)
  Receive Date: 20130225
  Receipt Date: 20130225
  Transmission Date: 20140127
  Serious: Yes (Other)
  Sender: FDA-Public Use
  Company Number: NL-ELI_LILLY_AND_COMPANY-NL201302004503

PATIENT
  Age: 39 Year
  Sex: Female

DRUGS (3)
  1. ZYPADHERA [Suspect]
     Dosage: 405 MG, EVERY TWO WEEKS
  2. ZYPADHERA [Suspect]
     Dosage: 300 MG, EVERY TWO WEEKS
  3. ZYPADHERA [Suspect]
     Dosage: 210 MG, EVERY TWO WEEKS

REACTIONS (3)
  - Congenital hypothyroidism [Unknown]
  - Prescribed overdose [Recovered/Resolved]
  - Drug level increased [Not Recovered/Not Resolved]
